FAERS Safety Report 15603070 (Version 1)
Quarter: 2018Q4

REPORT INFORMATION
  Report Type: Spontaneous
  Country: US (occurrence: US)
  Receive Date: 20181109
  Receipt Date: 20181109
  Transmission Date: 20190205
  Serious: Yes (Hospitalization)
  Sender: FDA-Public Use
  Company Number: None

PATIENT
  Sex: Female

DRUGS (6)
  1. ZYRTEC [Concomitant]
     Active Substance: CETIRIZINE HYDROCHLORIDE
  2. ATIVAN [Concomitant]
     Active Substance: LORAZEPAM
  3. ZOMETA [Concomitant]
     Active Substance: ZOLEDRONIC ACID
  4. POT CHLORIDE [Concomitant]
     Active Substance: POTASSIUM CHLORIDE
  5. LETROZOLE. [Concomitant]
     Active Substance: LETROZOLE
  6. IBRANCE [Suspect]
     Active Substance: PALBOCICLIB
     Indication: BREAST CANCER
     Dosage: ?          OTHER FREQUENCY:QD FOR 21 DAYS;?
     Route: 048
     Dates: start: 20171014

REACTIONS (1)
  - Therapy cessation [None]
